FAERS Safety Report 7266539-9 (Version None)
Quarter: 2011Q1

REPORT INFORMATION
  Report Type: 
  Country: None (occurrence: None)
  Receive Date: 20110131
  Receipt Date: 20110128
  Transmission Date: 20110831
  Serious: Yes (Life-Threatening, Hospitalization)
  Sender: FDA-Public Use
  Company Number: VE-ABBOTT-10P-178-0685090-00

PATIENT
  Age: 26 Year
  Sex: Female

DRUGS (2)
  1. KALETRA [Suspect]
     Indication: HIV INFECTION
     Route: 048
     Dates: start: 20100910, end: 20101001
  2. COMBIVIR [Concomitant]
     Indication: HIV INFECTION
     Dates: start: 20090101

REACTIONS (1)
  - LARYNGEAL OEDEMA [None]
